FAERS Safety Report 12155766 (Version 1)
Quarter: 2016Q1

REPORT INFORMATION
  Report Type: Spontaneous
  Country: BR (occurrence: BR)
  Receive Date: 20160307
  Receipt Date: 20160307
  Transmission Date: 20160526
  Serious: Yes (Other)
  Sender: FDA-Public Use
  Company Number: BR-PFIZER INC-2016138616

PATIENT
  Age: 76 Year
  Sex: Female
  Weight: 58.5 kg

DRUGS (3)
  1. VITAMIN C [Concomitant]
     Active Substance: ASCORBIC ACID
     Dosage: UNK
  2. SYNTHROID [Concomitant]
     Active Substance: LEVOTHYROXINE SODIUM
     Indication: HYPOTHYROIDISM
     Dosage: UNK
  3. FRONTAL [Suspect]
     Active Substance: ALPRAZOLAM
     Indication: EMOTIONAL DISORDER
     Dosage: 0.5 MG, 2X/DAY
     Dates: start: 1990

REACTIONS (4)
  - Tension [Not Recovered/Not Resolved]
  - Spinal fracture [Unknown]
  - Sciatic nerve injury [Not Recovered/Not Resolved]
  - Hypertension [Unknown]
